FAERS Safety Report 11076147 (Version 1)
Quarter: 2015Q2

REPORT INFORMATION
  Report Type: Spontaneous
  Country: US (occurrence: US)
  Receive Date: 20150429
  Receipt Date: 20150429
  Transmission Date: 20150821
  Serious: No
  Sender: FDA-Public Use
  Company Number: US-PFIZER INC-2015140942

PATIENT
  Age: 66 Year
  Sex: Female

DRUGS (1)
  1. LATANOPROST. [Suspect]
     Active Substance: LATANOPROST
     Dosage: 2.5 ML, 1X/DAY (1 DROP IN EACH EYE ONCE A DAY)

REACTIONS (2)
  - Dry throat [Unknown]
  - Dyspnoea [Unknown]
